FAERS Safety Report 6316910-4 (Version None)
Quarter: 2009Q3

REPORT INFORMATION
  Report Type: 
  Country: None (occurrence: None)
  Receive Date: 20090820
  Receipt Date: 20090810
  Transmission Date: 20100115
  Serious: Yes (Other)
  Sender: FDA-Public Use
  Company Number: US-PFIZER INC-2009253384

PATIENT
  Sex: Female
  Weight: 95.238 kg

DRUGS (3)
  1. SUNITINIB MALATE [Suspect]
     Indication: NEOPLASM MALIGNANT
     Dosage: 50 MG, 1X/DAY
     Dates: start: 20090101, end: 20090801
  2. POTASSIUM [Concomitant]
     Dosage: UNK
  3. IBUPROFEN [Concomitant]
     Dosage: UNK

REACTIONS (3)
  - DYSPHAGIA [None]
  - ORAL PAIN [None]
  - OROPHARYNGEAL PAIN [None]
